FAERS Safety Report 4579184-0 (Version None)
Quarter: 2005Q1

REPORT INFORMATION
  Report Type: 
  Country: None (occurrence: None)
  Receive Date: 20050208
  Receipt Date: 20050208
  Transmission Date: 20050727
  Serious: Yes (Hospitalization)
  Sender: FDA-Public Use
  Company Number: None

PATIENT
  Sex: Male
  Weight: 86.1834 kg

DRUGS (4)
  1. ALEVE [Suspect]
     Indication: INJURY
     Dosage: MAX RECOMM.   ORAL
     Route: 048
     Dates: start: 20030701, end: 20031227
  2. ALEVE [Suspect]
     Indication: MUSCLE STRAIN
     Dosage: MAX RECOMM.   ORAL
     Route: 048
     Dates: start: 20030701, end: 20031227
  3. ALEVE [Suspect]
     Indication: INJURY
     Dosage: MAX RECOMM.   ORAL
     Route: 048
     Dates: start: 20040328, end: 20041211
  4. ALEVE [Suspect]
     Indication: MUSCLE STRAIN
     Dosage: MAX RECOMM.   ORAL
     Route: 048
     Dates: start: 20040328, end: 20041211

REACTIONS (2)
  - CONDITION AGGRAVATED [None]
  - VENTRICULAR TACHYCARDIA [None]
